FAERS Safety Report 9654465 (Version 1)
Quarter: 2013Q4

REPORT INFORMATION
  Report Type: Spontaneous
  Country: IT (occurrence: None)
  Receive Date: 20131028
  Receipt Date: 20131028
  Transmission Date: 20140711
  Serious: Yes (Other)
  Sender: FDA-Public Use
  Company Number: 2013AP009198

PATIENT
  Age: 75 Year
  Sex: Male

DRUGS (4)
  1. SILDENAFIL (SILDENAFIL) [Suspect]
     Indication: PRODUCT USED FOR UNKNOWN INDICATION
     Route: 048
     Dates: start: 20130921, end: 20130921
  2. SINTROM (ACENOCOUMAROL) [Concomitant]
  3. LERCADIP/01366401/ (LERCANIDIPINE) [Concomitant]
  4. METOPROLOL (METOPROLOL) [Concomitant]

REACTIONS (1)
  - Syncope [None]
